FAERS Safety Report 15396924 (Version 1)
Quarter: 2018Q3

REPORT INFORMATION
  Report Type: Spontaneous
  Country: MA (occurrence: MA)
  Receive Date: 20180918
  Receipt Date: 20180918
  Transmission Date: 20181010
  Serious: Yes (Other)
  Sender: FDA-Public Use
  Company Number: MA-PFIZER INC-2018373682

PATIENT
  Age: 49 Year
  Sex: Male

DRUGS (2)
  1. SUNITINIB MALATE. [Suspect]
     Active Substance: SUNITINIB MALATE
     Indication: METASTATIC RENAL CELL CARCINOMA
     Dosage: 50 MG 4 WEEKS ON /2 WEEKS OFF
  2. SUNITINIB MALATE. [Suspect]
     Active Substance: SUNITINIB MALATE
     Dosage: 37.5 MG 4 WEEKS ON/2 WEEKS OFF

REACTIONS (7)
  - Neoplasm progression [Not Recovered/Not Resolved]
  - Diarrhoea [Unknown]
  - Neutrophil count decreased [Unknown]
  - Hypertension [Unknown]
  - Fatigue [Unknown]
  - Hepatocellular injury [Unknown]
  - Palmar-plantar erythrodysaesthesia syndrome [Unknown]
